FAERS Safety Report 24564740 (Version 1)
Quarter: 2024Q4

REPORT INFORMATION
  Report Type: Spontaneous
  Country: JP (occurrence: JP)
  Receive Date: 20241030
  Receipt Date: 20241030
  Transmission Date: 20250115
  Serious: Yes (Other)
  Sender: BRACCO
  Company Number: JP-BAYER-2024A152143

PATIENT
  Age: 77 Year
  Sex: Female

DRUGS (2)
  1. IOPAMIRON [Suspect]
     Active Substance: IOPAMIDOL
     Indication: Computerised tomogram
     Dosage: 84 ML, ONCE
     Route: 042
     Dates: start: 20241021, end: 20241021
  2. LEVOFLOXACIN [Concomitant]
     Active Substance: LEVOFLOXACIN
     Indication: Cholangitis
     Dosage: UNK

REACTIONS (6)
  - Respiratory arrest [Recovering/Resolving]
  - Loss of consciousness [Recovered/Resolved]
  - Cholangitis infective [Unknown]
  - Nausea [Recovering/Resolving]
  - Flushing [Recovering/Resolving]
  - Blood pressure decreased [Recovered/Resolved]

NARRATIVE: CASE EVENT DATE: 20241021
